FAERS Safety Report 24529043 (Version 4)
Quarter: 2025Q3

REPORT INFORMATION
  Report Type: Spontaneous
  Country: KR (occurrence: KR)
  Receive Date: 20241021
  Receipt Date: 20250813
  Transmission Date: 20251020
  Serious: Yes (Hospitalization)
  Sender: CHEPLAPHARM
  Company Number: KR-ROCHE-10000101413

PATIENT
  Age: 54 Year
  Sex: Female
  Weight: 49.5 kg

DRUGS (25)
  1. CAPECITABINE [Suspect]
     Active Substance: CAPECITABINE
     Indication: Breast cancer
     Dosage: DATE OF MOST RECENT DOSE (2300 MG) OF STUDY DRUG 2 PRIOR TO SAE ONSET: 13-AUG-2024.
     Route: 048
     Dates: start: 20170720
  2. TRASTUZUMAB [Suspect]
     Active Substance: TRASTUZUMAB
     Indication: Breast cancer
     Dosage: DATE OF MOST RECENT DOSE (384 MG) OF STUDY DRUG 1 PRIOR TO SAE ONSET: 24-SEP-2024
     Route: 042
     Dates: start: 20170720
  3. PERTUZUMAB [Suspect]
     Active Substance: PERTUZUMAB
     Indication: Breast cancer
     Dosage: DATE OF MOST RECENT DOSE (840 MG) OF PERTUZUMAB PRIOR TO SAE ONSET: 24-SEP-2024 AT 11:39.
     Route: 042
     Dates: start: 20170720
  4. MAGNESIUM OXIDE [Concomitant]
     Active Substance: MAGNESIUM OXIDE
     Route: 048
     Dates: start: 20241009, end: 20241010
  5. PREGABALIN [Concomitant]
     Active Substance: PREGABALIN
     Route: 048
     Dates: start: 20170515
  6. ZOLPIDEM [Concomitant]
     Active Substance: ZOLPIDEM TARTRATE
     Route: 048
     Dates: start: 20171211
  7. ZOLPIDEM [Concomitant]
     Active Substance: ZOLPIDEM TARTRATE
     Route: 048
     Dates: start: 20180530
  8. CHLORPHENIRAMINE [Concomitant]
     Active Substance: CHLORPHENIRAMINE
     Route: 048
     Dates: start: 20181101
  9. ACETAMINOPHEN [Concomitant]
     Active Substance: ACETAMINOPHEN
     Route: 048
     Dates: start: 20170720
  10. CHLORPHENIRAMINE MALEATE [Concomitant]
     Active Substance: CHLORPHENIRAMINE MALEATE
     Route: 042
     Dates: start: 20170720
  11. DESOXIMETASONE [Concomitant]
     Active Substance: DESOXIMETASONE
  12. BETADINE [Concomitant]
     Active Substance: POVIDONE-IODINE
  13. Airclan [Concomitant]
  14. Erexin [Concomitant]
  15. Albira [Concomitant]
  16. Lopmin [Concomitant]
  17. DEXTROSE [Concomitant]
     Active Substance: DEXTROSE MONOHYDRATE
     Route: 042
     Dates: start: 20241007, end: 20241008
  18. Cefzolin [Concomitant]
     Route: 042
     Dates: start: 20241007, end: 20241009
  19. GASTER [Concomitant]
     Active Substance: FAMOTIDINE
     Route: 042
     Dates: start: 20241008, end: 20241010
  20. AMBROXOL [Concomitant]
     Active Substance: AMBROXOL
     Route: 042
     Dates: start: 20241008, end: 20241008
  21. BUPIVACAINE [Concomitant]
     Active Substance: BUPIVACAINE
  22. Hartmann solution [Concomitant]
     Route: 042
     Dates: start: 20241008, end: 20241008
  23. ACETAMINOPHEN\TRAMADOL [Concomitant]
     Active Substance: ACETAMINOPHEN\TRAMADOL
     Route: 048
     Dates: start: 20241008, end: 20241010
  24. Tarivid 0.3% OPH [Concomitant]
     Dates: start: 20241007, end: 20241007
  25. VITAMIN C [Concomitant]
     Active Substance: ASCORBIC ACID
     Route: 048
     Dates: start: 20181101

REACTIONS (2)
  - Lung neoplasm malignant [Recovered/Resolved]
  - Metastatic neoplasm [Recovered/Resolved]

NARRATIVE: CASE EVENT DATE: 20240903
